FAERS Safety Report 4705537-3 (Version None)
Quarter: 2005Q2

REPORT INFORMATION
  Report Type: 
  Country: None (occurrence: None)
  Receive Date: 20050629
  Receipt Date: 20050606
  Transmission Date: 20051028
  Serious: Yes (Death, Life-Threatening, Hospitalization, Other)
  Sender: FDA-Public Use
  Company Number: 200210966EU

PATIENT
  Age: 59 Year
  Sex: Male

DRUGS (7)
  1. CISPLATIN [Suspect]
     Indication: OROPHARYNGEAL CANCER STAGE UNSPECIFIED
     Dosage: 179 MG/DAY IV
     Route: 042
     Dates: start: 20020225, end: 20020225
  2. CISPLATIN [Suspect]
     Indication: OROPHARYNGEAL CANCER STAGE UNSPECIFIED
     Dosage: 179 MG/DAY IV
     Route: 042
     Dates: start: 20020319, end: 20020319
  3. FLUOROURACIL INJ [Suspect]
     Indication: OROPHARYNGEAL CANCER STAGE UNSPECIFIED
     Dosage: 1611 MG/DAY IV
     Route: 042
     Dates: start: 20020225
  4. FLUOROURACIL INJ [Suspect]
     Indication: OROPHARYNGEAL CANCER STAGE UNSPECIFIED
     Dosage: 1611 MG/DAY IV
     Route: 042
     Dates: start: 20020323
  5. THYRAX [Concomitant]
  6. FRAXODI [Concomitant]
  7. MS CONTIN [Concomitant]

REACTIONS (22)
  - ABDOMINAL PAIN [None]
  - BLISTER [None]
  - BONE MARROW DEPRESSION [None]
  - BRONCHOPNEUMONIA [None]
  - COLITIS [None]
  - DEHYDRATION [None]
  - DIARRHOEA [None]
  - DYSPHASIA [None]
  - ESCHERICHIA SEPSIS [None]
  - FALL [None]
  - GASTROINTESTINAL NECROSIS [None]
  - HYPOTENSION [None]
  - INFLAMMATION [None]
  - MUCOSAL INFLAMMATION [None]
  - NAUSEA [None]
  - ORAL PAIN [None]
  - PHARYNGOLARYNGEAL PAIN [None]
  - PNEUMONIA [None]
  - RENAL FAILURE [None]
  - RENAL TUBULAR NECROSIS [None]
  - SEPTIC SHOCK [None]
  - WEIGHT DECREASED [None]
